FAERS Safety Report 5467278-7 (Version None)
Quarter: 2007Q3

REPORT INFORMATION
  Report Type: 
  Country: None (occurrence: None)
  Receive Date: 20070925
  Receipt Date: 20070914
  Transmission Date: 20080115
  Serious: Yes (Other)
  Sender: FDA-Public Use
  Company Number: US-PFIZER INC-2007077966

PATIENT
  Age: 57 Year
  Sex: Female
  Weight: 72.727 kg

DRUGS (5)
  1. CHANTIX [Suspect]
     Indication: SMOKING CESSATION THERAPY
     Route: 048
     Dates: start: 20070820, end: 20070828
  2. PREMARIN [Concomitant]
  3. VITAMIN CAP [Concomitant]
  4. VITAMIN B-12 [Concomitant]
  5. ZYRTEC [Concomitant]

REACTIONS (2)
  - DISORIENTATION [None]
  - IMPAIRED DRIVING ABILITY [None]
